FAERS Safety Report 8436479-8 (Version None)
Quarter: 2012Q2

REPORT INFORMATION
  Report Type: 
  Country: None (occurrence: None)
  Receive Date: 20120607
  Receipt Date: 20120607
  Transmission Date: 20120825
  Serious: No
  Sender: FDA-Public Use
  Company Number: None

PATIENT
  Age: 57 Year
  Sex: Female
  Weight: 54.4316 kg

DRUGS (1)
  1. ZAFIRLUKAST [Suspect]
     Indication: MUSCLE CONTRACTIONS INVOLUNTARY
     Dosage: 20MG 2/DAY,FOR 3 MONTHS

REACTIONS (1)
  - OFF LABEL USE [None]
